FAERS Safety Report 9442964 (Version 1)
Quarter: 2013Q3

REPORT INFORMATION
  Report Type: Spontaneous
  Country: US (occurrence: None)
  Receive Date: 20130805
  Receipt Date: 20130805
  Transmission Date: 20140515
  Serious: Yes (Life-Threatening)
  Sender: FDA-Public Use
  Company Number: None

PATIENT
  Age: 60 Year
  Sex: Female
  Weight: 53.07 kg

DRUGS (7)
  1. ESCITALOPRAM [Suspect]
     Indication: ANXIETY
     Dosage: 15 MG 1 PER DAY PILL BY MOUTH
     Route: 048
     Dates: start: 201205
  2. ESCITALOPRAM [Suspect]
     Indication: ANXIETY
     Dosage: ONE 20 MG PILL CUT AS NEEDED 1 PER DAY PILL BY MOUTH
     Route: 048
     Dates: start: 201205
  3. SINGULAIR [Concomitant]
  4. LEXAPRO [Concomitant]
  5. XANAX [Concomitant]
  6. PROBIOTIC [Concomitant]
  7. VITAMIN D [Concomitant]

REACTIONS (6)
  - Blood pressure decreased [None]
  - Syncope [None]
  - Loss of consciousness [None]
  - Dizziness [None]
  - Tremor [None]
  - Product substitution issue [None]
